FAERS Safety Report 9502466 (Version 1)
Quarter: 2013Q3

REPORT INFORMATION
  Report Type: Spontaneous
  Country: FI (occurrence: FI)
  Receive Date: 20130906
  Receipt Date: 20130906
  Transmission Date: 20140515
  Serious: Yes (Other)
  Sender: FDA-Public Use
  Company Number: FI-BRISTOL-MYERS SQUIBB COMPANY-19251362

PATIENT
  Sex: Female

DRUGS (1)
  1. BYDUREON [Suspect]
     Dates: start: 201305, end: 201306

REACTIONS (4)
  - Rib fracture [Unknown]
  - Vomiting [Unknown]
  - Weight decreased [Unknown]
  - Peritonitis [Unknown]
